FAERS Safety Report 23250899 (Version 1)
Quarter: 2023Q4

REPORT INFORMATION
  Report Type: Spontaneous
  Country: US (occurrence: US)
  Receive Date: 20231201
  Receipt Date: 20231201
  Transmission Date: 20240110
  Serious: Yes (Other)
  Sender: FDA-Public Use
  Company Number: US-BRISTOL-MYERS SQUIBB COMPANY-2023-171883

PATIENT
  Age: 68 Year
  Sex: Male

DRUGS (1)
  1. NIVOLUMAB [Suspect]
     Active Substance: NIVOLUMAB
     Indication: Hepatocellular carcinoma

REACTIONS (4)
  - Vitiligo [Recovering/Resolving]
  - Hypothyroidism [Unknown]
  - Pruritus [Recovering/Resolving]
  - Off label use [Unknown]
